FAERS Safety Report 25563938 (Version 1)
Quarter: 2025Q3

REPORT INFORMATION
  Report Type: Spontaneous
  Country: US (occurrence: US)
  Receive Date: 20250716
  Receipt Date: 20250716
  Transmission Date: 20251021
  Serious: Yes (Life-Threatening, Other)
  Sender: BAXTER
  Company Number: US-BAXTER-2025BAX018240

PATIENT
  Age: 54 Year
  Sex: Male

DRUGS (2)
  1. METOPROLOL TARTRATE [Suspect]
     Active Substance: METOPROLOL TARTRATE
     Route: 065
  2. DILTIAZEM [Suspect]
     Active Substance: DILTIAZEM
     Route: 065

REACTIONS (12)
  - BRASH syndrome [Unknown]
  - Multiple organ dysfunction syndrome [Unknown]
  - Overdose [Unknown]
  - Lethargy [Unknown]
  - Hypoxia [Unknown]
  - Bradycardia [Unknown]
  - Hypotension [Unknown]
  - Hyperkalaemia [Unknown]
  - Metabolic acidosis [Unknown]
  - Cardiogenic shock [Unknown]
  - Cardiac contractility decreased [Unknown]
  - Lactic acidosis [Recovering/Resolving]
